FAERS Safety Report 7793215-6 (Version None)
Quarter: 2011Q4

REPORT INFORMATION
  Report Type: 
  Country: None (occurrence: None)
  Receive Date: 20111003
  Receipt Date: 20110919
  Transmission Date: 20120403
  Serious: Yes (Hospitalization)
  Sender: FDA-Public Use
  Company Number: US-ELI_LILLY_AND_COMPANY-US201109006735

PATIENT
  Age: 39 Year
  Sex: Male

DRUGS (6)
  1. AMLODIPINE W/BENAZEPRIL [Concomitant]
     Dosage: 20 MG, QD
  2. CETIRIZINE HCL [Concomitant]
     Dosage: 10 MG, QD
  3. HUMALOG [Suspect]
     Indication: TYPE 2 DIABETES MELLITUS
     Dosage: 25 U, OTHER
  4. OMEPRAZOLE [Concomitant]
     Dosage: 40 MG, QD
  5. LANTUS [Concomitant]
     Dosage: 50 U, BID
  6. ALBUTEROL [Concomitant]
     Dosage: 3 ML, PRN
     Route: 055

REACTIONS (5)
  - DEPRESSION [None]
  - SUICIDAL IDEATION [None]
  - SUICIDE ATTEMPT [None]
  - HYPOGLYCAEMIA [None]
  - INTENTIONAL OVERDOSE [None]
